FAERS Safety Report 9054628 (Version 1)
Quarter: 2013Q1

REPORT INFORMATION
  Report Type: Report from Study
  Country: US (occurrence: NL)
  Receive Date: 20130208
  Receipt Date: 20130208
  Transmission Date: 20140127
  Serious: Yes (Hospitalization)
  Sender: FDA-Public Use
  Company Number: NL-PFIZER INC-2013049820

PATIENT
  Age: 56 Year
  Sex: Female
  Weight: 96 kg

DRUGS (6)
  1. GENOTROPIN [Suspect]
     Dosage: 0.4 MG, 1X/DAY,7 INJECTIONS/WEEK
     Route: 058
     Dates: start: 20070219
  2. LEVOTHYROXINE [Concomitant]
     Indication: BLOOD THYROID STIMULATING HORMONE DECREASED
     Dosage: UNK
     Dates: start: 19920701
  3. LEVOTHYROXINE [Concomitant]
     Indication: PRIMARY HYPOTHYROIDISM
  4. DESMOPRESSIN [Concomitant]
     Indication: BLOOD ANTIDIURETIC HORMONE DECREASED
     Dosage: UNK
     Dates: start: 19920701
  5. MICROGYNON [Concomitant]
     Indication: HYPOGONADISM
     Dosage: UNK
     Dates: start: 19920701
  6. CORTISONE ACETATE [Concomitant]
     Indication: BLOOD CORTICOTROPHIN DECREASED
     Dosage: UNK
     Dates: start: 19920701

REACTIONS (1)
  - Nasal cyst [Unknown]
